FAERS Safety Report 17669934 (Version 1)
Quarter: 2020Q2

REPORT INFORMATION
  Report Type: Report from Study
  Country: BE (occurrence: BE)
  Receive Date: 20200415
  Receipt Date: 20200415
  Transmission Date: 20200713
  Serious: Yes (Hospitalization)
  Sender: FDA-Public Use
  Company Number: NVSC2020BE086389

PATIENT
  Age: 79 Year
  Sex: Male
  Weight: 70 kg

DRUGS (4)
  1. MEKINIST [Suspect]
     Active Substance: TRAMETINIB DIMETHYL SULFOXIDE
     Dosage: 200 MG
     Route: 048
  2. MEKINIST [Suspect]
     Active Substance: TRAMETINIB DIMETHYL SULFOXIDE
     Indication: NON-SMALL CELL LUNG CANCER
     Dosage: 300 MG
     Route: 048
     Dates: start: 20200311, end: 20200325
  3. MEKINIST [Suspect]
     Active Substance: TRAMETINIB DIMETHYL SULFOXIDE
     Dosage: 1.5 MG
     Route: 048
  4. MEKINIST [Suspect]
     Active Substance: TRAMETINIB DIMETHYL SULFOXIDE
     Indication: NON-SMALL CELL LUNG CANCER
     Dosage: 2 MG
     Route: 048
     Dates: start: 20200311, end: 20200325

REACTIONS (4)
  - General physical health deterioration [Unknown]
  - Dehydration [Unknown]
  - Decreased appetite [Unknown]
  - Hypertension [Unknown]

NARRATIVE: CASE EVENT DATE: 20200325
